FAERS Safety Report 14624441 (Version 1)
Quarter: 2018Q1

REPORT INFORMATION
  Report Type: Spontaneous
  Country: IL (occurrence: IL)
  Receive Date: 20180312
  Receipt Date: 20180312
  Transmission Date: 20180509
  Serious: Yes (Other)
  Sender: FDA-Public Use
  Company Number: IL-009507513-1803ISR003390

PATIENT
  Sex: Female

DRUGS (1)
  1. JANUET [Suspect]
     Active Substance: METFORMIN HYDROCHLORIDE\SITAGLIPTIN PHOSPHATE
     Indication: DIABETES MELLITUS
     Route: 048

REACTIONS (2)
  - Renal failure [Unknown]
  - Nephritis [Unknown]

NARRATIVE: CASE EVENT DATE: 201801
